FAERS Safety Report 7467419-6 (Version None)
Quarter: 2011Q2

REPORT INFORMATION
  Report Type: 
  Country: None (occurrence: None)
  Receive Date: 20110509
  Receipt Date: 20090930
  Transmission Date: 20111010
  Serious: Yes (Other)
  Sender: FDA-Public Use
  Company Number: US-BAYER-2011-010229

PATIENT
  Age: 68 Year
  Sex: Female
  Weight: 67.12 kg

DRUGS (60)
  1. PLAVIX [Concomitant]
     Indication: TRANSIENT ISCHAEMIC ATTACK
  2. WARFARIN [Concomitant]
     Indication: PRODUCT USED FOR UNKNOWN INDICATION
     Dosage: UNK
  3. FOSAMAX [Concomitant]
     Indication: PRODUCT USED FOR UNKNOWN INDICATION
     Dosage: 70 MG SATURDAY, UNK
     Route: 048
  4. HEPARIN [Concomitant]
     Indication: PRODUCT USED FOR UNKNOWN INDICATION
     Dosage: 1 MU/ML 30 ML VIAL UNK
     Dates: start: 20051004
  5. SODIUM BICARBONATE [Concomitant]
     Indication: PRODUCT USED FOR UNKNOWN INDICATION
     Dosage: UNK
     Dates: start: 20051004
  6. PROPOFOL [Concomitant]
     Dosage: 10 MG/ML, 100 ML VIAL UNK
     Dates: start: 20051004, end: 20051004
  7. FRESH FROZEN PLASMA [Concomitant]
     Indication: PRODUCT USED FOR UNKNOWN INDICATION
     Dosage: 6 UNK
     Route: 042
     Dates: start: 20051004
  8. ACETYLSALICYLIC ACID SRT [Concomitant]
     Indication: TRANSIENT ISCHAEMIC ATTACK
  9. OMNIPAQUE 140 [Concomitant]
     Indication: CATHETERISATION CARDIAC
     Dosage: UNK
     Dates: start: 20051003
  10. PROTONIX [Concomitant]
     Indication: PRODUCT USED FOR UNKNOWN INDICATION
     Dosage: 40 MG, UNK IV PUSH
     Dates: start: 20051005
  11. MAGNESIUM SULFATE [Concomitant]
     Indication: PRODUCT USED FOR UNKNOWN INDICATION
     Dosage: 1 G, UNK
     Dates: start: 20051004
  12. PLATELETS [Concomitant]
     Indication: PRODUCT USED FOR UNKNOWN INDICATION
     Dosage: 3 UNK
     Route: 042
  13. RED BLOOD CELLS, CONCENTRATED [Concomitant]
     Indication: PRODUCT USED FOR UNKNOWN INDICATION
     Dosage: 11 UNK
     Dates: start: 20051004
  14. TRASYLOL [Suspect]
     Dosage: 50 ML (LOADING DOSE), Q1HR
     Route: 041
     Dates: start: 20051004, end: 20051004
  15. ACETYLSALICYLIC ACID SRT [Concomitant]
     Indication: BASILAR ARTERY STENOSIS
     Dosage: 81 MG, QD
     Route: 048
  16. MICARDIS HCT [Concomitant]
     Indication: PRODUCT USED FOR UNKNOWN INDICATION
     Dosage: 80-25 MG/ 1 DAILY
     Route: 048
  17. COUMADIN [Concomitant]
     Indication: PRODUCT USED FOR UNKNOWN INDICATION
     Dosage: 5 MG, QOD
     Route: 048
  18. TECHNETIUM (99M TC) SESTAMIBI [Concomitant]
     Indication: CARDIAC STRESS TEST
     Dosage: UNK
     Dates: start: 20051025
  19. DARVON [Concomitant]
     Indication: PRODUCT USED FOR UNKNOWN INDICATION
     Dosage: UNK
     Route: 048
  20. CENTRUM SILVER [Concomitant]
     Indication: PRODUCT USED FOR UNKNOWN INDICATION
     Dosage: UNK
     Route: 048
  21. CALCIUM D [Concomitant]
     Indication: PRODUCT USED FOR UNKNOWN INDICATION
     Dosage: UNK
     Route: 048
  22. KLOR-CON [Concomitant]
     Indication: PRODUCT USED FOR UNKNOWN INDICATION
     Dosage: 10 MEQ, UNK
     Route: 048
  23. ROBINUL [Concomitant]
     Indication: PRODUCT USED FOR UNKNOWN INDICATION
     Dosage: 0.2 MG/ML, 2 ML UNK
     Dates: start: 20051004, end: 20051004
  24. PROPOFOL [Concomitant]
     Indication: PRODUCT USED FOR UNKNOWN INDICATION
     Dosage: 10 MG/ML, 50 ML VIAL UNK
     Dates: start: 20051004, end: 20051004
  25. ANCEF [Concomitant]
     Indication: PRODUCT USED FOR UNKNOWN INDICATION
     Dosage: 1 G, UNK
     Dates: start: 20051005
  26. DESIPRAMINE HCL [Concomitant]
     Indication: PRODUCT USED FOR UNKNOWN INDICATION
     Dosage: 10 MG, BID (TAKING ONCE A DAY NOW)
     Route: 048
  27. TEMAZ [Concomitant]
     Indication: PRODUCT USED FOR UNKNOWN INDICATION
     Dosage: UNK
  28. ENABLEX [Concomitant]
     Indication: PRODUCT USED FOR UNKNOWN INDICATION
     Dosage: 7.5 MG, QD
  29. NORVASC [Concomitant]
     Indication: PRODUCT USED FOR UNKNOWN INDICATION
     Dosage: UNK
     Route: 048
  30. MANNITOL [Concomitant]
     Indication: PRODUCT USED FOR UNKNOWN INDICATION
     Dosage: 12.5 G, UNK
     Dates: start: 20051004, end: 20051004
  31. SODIUM NITROPRUSSIDE [Concomitant]
     Dosage: 50 MG, 2 ML VIAL UNK
     Dates: start: 20051004, end: 20051004
  32. SODIUM BICARBONATE [Concomitant]
     Dosage: UNK
     Dates: end: 20051004
  33. FAMOTIDINE [Concomitant]
     Indication: PRODUCT USED FOR UNKNOWN INDICATION
     Dosage: 20 MG, 2 ML VIAL UNK
     Dates: start: 20051004, end: 20051004
  34. TRASYLOL [Suspect]
     Indication: CORONARY ARTERY DISEASE
     Dosage: FULL DOSE OF APROTININ WAS USED +#8221;
     Route: 042
  35. OMNIPAQUE 140 [Concomitant]
     Dosage: 124 CCS
  36. PLAVIX [Concomitant]
     Indication: BASILAR ARTERY STENOSIS
     Dosage: 75 MG, QD
     Route: 048
  37. AMLODIPINE BESYLATE [Concomitant]
     Indication: PRODUCT USED FOR UNKNOWN INDICATION
  38. LOTREL [Concomitant]
     Indication: PRODUCT USED FOR UNKNOWN INDICATION
     Dosage: 5/20 MG
     Route: 048
  39. FENTANYL [Concomitant]
     Indication: PRODUCT USED FOR UNKNOWN INDICATION
     Dosage: 0.05 MG/ML, UNK
     Dates: start: 20051005
  40. SUFENTANIL [Concomitant]
     Indication: PRODUCT USED FOR UNKNOWN INDICATION
     Dosage: 50 MICROGRAMS/ML 5 ML
     Dates: start: 20051004, end: 20051004
  41. NITROGLYCERIN [Concomitant]
     Indication: PRODUCT USED FOR UNKNOWN INDICATION
     Dosage: 100 MG/250 M, UNK
     Dates: start: 20051004
  42. LASIX [Concomitant]
     Indication: PRODUCT USED FOR UNKNOWN INDICATION
     Dosage: 80 MG, BID
     Route: 042
     Dates: start: 20051004, end: 20051004
  43. TRASYLOL [Suspect]
     Dosage: 200 ML (LOADING DOSE), UNK
     Route: 042
     Dates: start: 20051004, end: 20051004
  44. SYNTHROID [Concomitant]
     Indication: PRODUCT USED FOR UNKNOWN INDICATION
     Dosage: 25 ?G QD
     Route: 048
  45. MICARDIS HCT [Concomitant]
     Dosage: 40/125 NIGHTLY
     Route: 048
  46. METOCLOPRAMIDE [Concomitant]
     Indication: PRODUCT USED FOR UNKNOWN INDICATION
     Dosage: UNK
     Dates: start: 20051004, end: 20051005
  47. EPHEDRINE SUL CAP [Concomitant]
     Indication: PRODUCT USED FOR UNKNOWN INDICATION
     Dosage: 50 MG/ML, 1 ML VIAL UNK
     Dates: start: 20051004, end: 20051004
  48. MIDAZOLAM [Concomitant]
     Indication: PRODUCT USED FOR UNKNOWN INDICATION
     Dosage: 1 MG/ML 5 ML VIAL UNK
     Dates: start: 20051004, end: 20051004
  49. PROTAMINE SULFATE [Concomitant]
     Indication: PRODUCT USED FOR UNKNOWN INDICATION
     Dosage: 10 MG/ML 25 M 5 ML, UNK
  50. POTASSIUM CHLORIDE [Concomitant]
     Indication: PRODUCT USED FOR UNKNOWN INDICATION
     Dosage: 20 MEQ/50 ML WATER, UNK
     Dates: start: 20051004
  51. MORPHINE SULFATE [Concomitant]
     Indication: PRODUCT USED FOR UNKNOWN INDICATION
     Dosage: 2 MG/ 1ML UNK
     Route: 042
     Dates: start: 20051004
  52. TRASYLOL [Suspect]
     Indication: CORONARY ARTERY BYPASS
     Dosage: 1 ML (TEST DOSE), UNK
     Route: 042
     Dates: start: 20051004, end: 20051004
  53. TRASYLOL [Suspect]
     Dosage: 200 ML (TEST DOSE) VIA CARDIOPULMONARY BYPASS, UNK
     Route: 042
     Dates: start: 20051004, end: 20051004
  54. LOPRESSOR [Concomitant]
     Indication: PRODUCT USED FOR UNKNOWN INDICATION
     Dosage: 100 MG 1/2 TAB BID
     Route: 048
  55. LIPITOR [Concomitant]
     Indication: PRODUCT USED FOR UNKNOWN INDICATION
     Dosage: 5 MG, QD
     Route: 048
     Dates: end: 20051013
  56. DARVOCET-N 50 [Concomitant]
     Indication: PRODUCT USED FOR UNKNOWN INDICATION
     Dosage: 100/650 1/2 TABLET PRN
     Route: 048
  57. COUMADIN [Concomitant]
     Dosage: 2.5 MG, QOD
     Route: 048
  58. PANCURONIUM BROMIDE [Concomitant]
     Indication: PRODUCT USED FOR UNKNOWN INDICATION
     Dosage: 1 MG/ML, UNK
     Dates: start: 20051004
  59. APRESOLINE [Concomitant]
     Indication: PRODUCT USED FOR UNKNOWN INDICATION
     Dosage: 20 MG/ML, 1 ML UNK
     Route: 042
     Dates: start: 20051005, end: 20051005
  60. CRYOPRECIPITATES [Concomitant]
     Indication: PRODUCT USED FOR UNKNOWN INDICATION
     Dosage: UNK
     Route: 042
     Dates: start: 20051004

REACTIONS (14)
  - ANXIETY [None]
  - PAIN [None]
  - EMOTIONAL DISTRESS [None]
  - NERVOUSNESS [None]
  - FEAR [None]
  - RENAL INJURY [None]
  - DEPRESSION [None]
  - ANHEDONIA [None]
  - PSYCHIATRIC SYMPTOM [None]
  - INJURY [None]
  - FEAR OF DEATH [None]
  - MULTI-ORGAN FAILURE [None]
  - UNEVALUABLE EVENT [None]
  - RENAL FAILURE [None]
